FAERS Safety Report 13546052 (Version 1)
Quarter: 2017Q2

REPORT INFORMATION
  Report Type: Spontaneous
  Country: US (occurrence: US)
  Receive Date: 20170514
  Receipt Date: 20170514
  Transmission Date: 20170830
  Serious: No
  Sender: FDA-Public Use
  Company Number: None

PATIENT
  Age: 50 Year
  Sex: Female
  Weight: 87.75 kg

DRUGS (9)
  1. LATUDA [Suspect]
     Active Substance: LURASIDONE HYDROCHLORIDE
     Indication: BIPOLAR DISORDER
     Dosage: QUANTITY:1 TABLET(S);OTHER FREQUENCY:WITH DINNER;?
     Route: 048
     Dates: start: 20170512, end: 20170514
  2. NEBULIZER [Concomitant]
     Active Substance: DEVICE
  3. MORPHIN [Concomitant]
     Active Substance: MORPHINE
  4. EFFIXOR [Concomitant]
  5. SIMVASTATION [Concomitant]
  6. METFORMIN [Concomitant]
     Active Substance: METFORMIN HYDROCHLORIDE
  7. INHALER [Concomitant]
     Active Substance: UNSPECIFIED INGREDIENT
  8. AMBEIN [Concomitant]
  9. WELLBUTRIN [Concomitant]
     Active Substance: BUPROPION HYDROCHLORIDE

REACTIONS (6)
  - Palpitations [None]
  - Fatigue [None]
  - Chronic obstructive pulmonary disease [None]
  - Asthma [None]
  - Dyspnoea [None]
  - Dyskinesia [None]

NARRATIVE: CASE EVENT DATE: 20170513
